FAERS Safety Report 18420431 (Version 1)
Quarter: 2020Q4

REPORT INFORMATION
  Report Type: Spontaneous
  Country: PT (occurrence: PT)
  Receive Date: 20201023
  Receipt Date: 20201023
  Transmission Date: 20210114
  Serious: Yes (Other)
  Sender: FDA-Public Use
  Company Number: PT-009507513-2010PRT007605

PATIENT
  Age: 22 Year
  Sex: Male

DRUGS (1)
  1. ELOCOM [Suspect]
     Active Substance: MOMETASONE FUROATE
     Indication: BALANOPOSTHITIS
     Dosage: UNK
     Route: 003
     Dates: start: 20200924

REACTIONS (2)
  - Epididymitis [Recovered/Resolved]
  - Testicular pain [Recovered/Resolved]

NARRATIVE: CASE EVENT DATE: 2020
